FAERS Safety Report 5045873-7 (Version None)
Quarter: 2006Q2

REPORT INFORMATION
  Report Type: 
  Country: None (occurrence: None)
  Receive Date: 20060629
  Receipt Date: 20060619
  Transmission Date: 20061013
  Serious: Yes (Death)
  Sender: FDA-Public Use
  Company Number: 2006077841

PATIENT
  Age: 53 Year
  Sex: Male

DRUGS (3)
  1. VFEND [Suspect]
     Indication: FUNGAL INFECTION
     Dosage: 300 MG, ORAL
     Route: 048
     Dates: start: 20050920, end: 20050930
  2. AMIKACIN SULFATE [Concomitant]
  3. BAKTAR (SULFAMETHOXAZOLE/TRIMETHOPRIM) (SULFAMETHOXAZOLE, TRIMETHOPRIM [Concomitant]

REACTIONS (4)
  - BACTERIAL INFECTION [None]
  - CYTOMEGALOVIRUS INFECTION [None]
  - VISION BLURRED [None]
  - VISUAL DISTURBANCE [None]
